FAERS Safety Report 8838552 (Version 2)
Quarter: 2012Q4

REPORT INFORMATION
  Report Type: 
  Country: IT (occurrence: IT)
  Receive Date: 20121012
  Receipt Date: 20121025
  Transmission Date: 20130627
  Serious: Yes (Other)
  Sender: FDA-Public Use
  Company Number: IT-ELI_LILLY_AND_COMPANY-IT201210002976

PATIENT
  Age: 57 Year
  Sex: Male
  Weight: 100 kg

DRUGS (4)
  1. ALIMTA [Suspect]
     Indication: LUNG ADENOCARCINOMA
     Dosage: 800 mg, (500mg/m2)
     Route: 042
     Dates: start: 20120706, end: 20120706
  2. ALIMTA [Suspect]
     Dosage: 600 mg, unknown
     Route: 042
  3. CISPLATIN [Concomitant]
     Indication: LUNG ADENOCARCINOMA
     Dosage: 110 UNK, (50mg/m2)
     Route: 042
     Dates: start: 20120706, end: 20120706
  4. EMEND [Concomitant]
     Dosage: UNK UNK, unknown
     Dates: start: 20120706, end: 20120706

REACTIONS (5)
  - Blood lactate dehydrogenase increased [Unknown]
  - Blood alkaline phosphatase increased [Unknown]
  - Gamma-glutamyltransferase increased [Unknown]
  - Alanine aminotransferase increased [Unknown]
  - Aspartate aminotransferase increased [Unknown]
